FAERS Safety Report 7808219-4 (Version None)
Quarter: 2011Q4

REPORT INFORMATION
  Report Type: 
  Country: None (occurrence: None)
  Receive Date: 20111011
  Receipt Date: 20110922
  Transmission Date: 20120403
  Serious: Yes (Hospitalization)
  Sender: FDA-Public Use
  Company Number: PHHO2011US16145

PATIENT
  Sex: Male
  Weight: 120 kg

DRUGS (2)
  1. EXFORGE HCT [Suspect]
     Indication: HYPERTENSION
     Dosage: UNK
     Dates: start: 20101220, end: 20110902
  2. AGOMELATINE [Suspect]
     Indication: MAJOR DEPRESSION
     Dosage: 1 MG, QD
     Route: 048
     Dates: start: 20110201

REACTIONS (1)
  - DEHYDRATION [None]
